FAERS Safety Report 25183712 (Version 1)
Quarter: 2025Q2

REPORT INFORMATION
  Report Type: Spontaneous
  Country: US (occurrence: None)
  Receive Date: 20250409
  Receipt Date: 20250409
  Transmission Date: 20250716
  Serious: Yes (Life-Threatening, Hospitalization, Disabling)
  Sender: FDA-CTU
  Company Number: None

PATIENT
  Age: 22 Year
  Sex: Male
  Weight: 58.5 kg

DRUGS (11)
  1. HEMLIBRA [Suspect]
     Active Substance: EMICIZUMAB-KXWH
     Indication: Factor VIII deficiency
     Route: 058
  2. SERTRALINE [Concomitant]
     Active Substance: SERTRALINE HYDROCHLORIDE
  3. OPSUMIT [Concomitant]
     Active Substance: MACITENTAN
  4. REMODULIN [Concomitant]
     Active Substance: TREPROSTINIL
  5. BUMEX [Concomitant]
     Active Substance: BUMETANIDE
  6. SPIRONOLACTONE [Concomitant]
     Active Substance: SPIRONOLACTONE
  7. ELIQUIS [Concomitant]
     Active Substance: APIXABAN
  8. TRAMADOL [Concomitant]
     Active Substance: TRAMADOL
  9. DEVICE [Concomitant]
     Active Substance: DEVICE
  10. TYLENOL [Concomitant]
     Active Substance: ACETAMINOPHEN
  11. IMODIUM [Concomitant]
     Active Substance: LOPERAMIDE HYDROCHLORIDE

REACTIONS (3)
  - Pulmonary embolism [None]
  - Pulmonary hypertension [None]
  - Right ventricular failure [None]

NARRATIVE: CASE EVENT DATE: 20250205
